FAERS Safety Report 7510212-6 (Version None)
Quarter: 2011Q2

REPORT INFORMATION
  Report Type: 
  Country: None (occurrence: None)
  Receive Date: 20110527
  Receipt Date: 20101110
  Transmission Date: 20111010
  Serious: No
  Sender: FDA-Public Use
  Company Number: US-BAYER-201040932NA

PATIENT
  Sex: Female

DRUGS (5)
  1. ROCEPHIN [Concomitant]
  2. MEDROL [Concomitant]
  3. AVELOX [Suspect]
     Indication: BRAIN ABSCESS
     Dosage: 400 MG, QD
     Route: 042
     Dates: start: 20101031
  4. DILANTIN [Concomitant]
  5. PERCOCET [Concomitant]

REACTIONS (1)
  - ARTHRALGIA [None]
